FAERS Safety Report 7035739-5 (Version None)
Quarter: 2010Q4

REPORT INFORMATION
  Report Type: 
  Country: None (occurrence: None)
  Receive Date: 20101008
  Receipt Date: 20101001
  Transmission Date: 20110411
  Serious: Yes (Other)
  Sender: FDA-Public Use
  Company Number: US-PFIZER INC-2010115290

PATIENT
  Sex: Female
  Weight: 74.83 kg

DRUGS (11)
  1. CHANTIX [Suspect]
     Indication: SMOKING CESSATION THERAPY
     Dosage: 0.5 MG, 1X/DAY
     Dates: start: 20100831
  2. CHANTIX [Suspect]
     Dosage: 1 MG, DAILY
     Dates: start: 20100913, end: 20100915
  3. PROZAC [Concomitant]
     Indication: DEPRESSION
     Dosage: UNK
  4. LAMICTAL [Concomitant]
     Dosage: UNK
  5. AMITIZA [Concomitant]
     Dosage: UNK
  6. LOPID [Concomitant]
     Dosage: UNK
  7. CALCIUM [Concomitant]
     Dosage: UNK
  8. ALOES [Concomitant]
     Dosage: UNK
  9. METHYLSULFONYLMETHANE [Concomitant]
     Dosage: UNK
  10. FISH OIL [Concomitant]
     Dosage: UNK
  11. CLONIDINE [Concomitant]
     Dosage: UNK

REACTIONS (4)
  - ABNORMAL BEHAVIOUR [None]
  - AGITATION [None]
  - ANGER [None]
  - MENISCUS LESION [None]
